FAERS Safety Report 8736075 (Version 2)
Quarter: 2014Q2

REPORT INFORMATION
  Report Type: Spontaneous
  Country: US (occurrence: US)
  Receive Date: 20120822
  Receipt Date: 20140409
  Transmission Date: 20141212
  Serious: Yes (Other)
  Sender: FDA-Public Use
  Company Number: US-ROXANE LABORATORIES, INC.-2012-RO-01706RO

PATIENT
  Age: 70 Year
  Sex: Male

DRUGS (10)
  1. DONEPEZIL HYDROCHLORIDE [Suspect]
     Indication: COGNITIVE DISORDER
     Dosage: 5 MG
     Route: 065
  2. DONEPEZIL HYDROCHLORIDE [Suspect]
     Dosage: 10 MG
     Route: 065
  3. QUETIAPINE FUMARATE [Suspect]
     Indication: SCHIZOPHRENIA, PARANOID TYPE
     Dosage: 500 MG
     Route: 065
  4. MEMANTINE [Suspect]
     Indication: COGNITIVE DISORDER
     Dosage: 5 MG
     Route: 065
  5. LEVOTHYROXINE [Concomitant]
     Dosage: 50 MCG
     Route: 065
  6. FERROUS SULFATE [Concomitant]
     Dosage: 650 MG
     Route: 065
  7. ASCORBIC ACID [Concomitant]
     Dosage: 500 MG
     Route: 065
  8. AMLODIPINE [Concomitant]
     Dosage: 5 MG
     Route: 065
  9. SPIRONOLACTONE [Concomitant]
     Dosage: 25 MG
     Route: 065
  10. HYDROCHLOROTHIAZIDE [Concomitant]
     Dosage: 25 MG
     Route: 065

REACTIONS (1)
  - Mania [Recovered/Resolved]
